FAERS Safety Report 5297953-9 (Version None)
Quarter: 2007Q2

REPORT INFORMATION
  Report Type: 
  Country: None (occurrence: None)
  Receive Date: 20070416
  Receipt Date: 20070410
  Transmission Date: 20071010
  Serious: Yes (Death)
  Sender: FDA-Public Use
  Company Number: GB-GLAXOSMITHKLINE-B0466291A

PATIENT
  Age: 9 Year
  Sex: Female
  Weight: 26 kg

DRUGS (4)
  1. SALMETEROL [Suspect]
     Indication: ASTHMA
     Route: 055
  2. FLUTICASONE PROPIONATE [Concomitant]
     Indication: ASTHMA
     Dosage: 125MCG TWICE PER DAY
     Route: 055
  3. MONTELUKAST SODIUM [Concomitant]
     Indication: ASTHMA
     Dosage: 5MG PER DAY
     Route: 048
  4. SALBUTAMOL [Concomitant]
     Indication: ASTHMA
     Route: 055

REACTIONS (1)
  - ASTHMA [None]
